FAERS Safety Report 9791502 (Version 1)
Quarter: 2014Q1

REPORT INFORMATION
  Report Type: Spontaneous
  Country: US (occurrence: US)
  Receive Date: 20140101
  Receipt Date: 20140101
  Transmission Date: 20141002
  Serious: No
  Sender: FDA-Public Use
  Company Number: US-BAYER-2013-159493

PATIENT
  Age: 86 Year
  Sex: Male
  Weight: 59 kg

DRUGS (7)
  1. ALEVE GELCAPS [Suspect]
     Indication: ANALGESIC THERAPY
     Dosage: 1 DF, BID
     Route: 048
     Dates: start: 20131229
  2. ISOSORBIDE MONONITRATE [Concomitant]
  3. HYDROCHLOROTHIAZIDE [Concomitant]
  4. METOPROLOL SUCCINATE [Concomitant]
  5. ECOTRIN [Concomitant]
  6. SIMVASTATIN [Concomitant]
  7. LATANOPROST [Concomitant]

REACTIONS (1)
  - Drug ineffective [None]
